FAERS Safety Report 9674792 (Version 1)
Quarter: 2013Q4

REPORT INFORMATION
  Report Type: Spontaneous
  Country: US (occurrence: US)
  Receive Date: 20131107
  Receipt Date: 20131107
  Transmission Date: 20140711
  Serious: Yes (Death, Life-Threatening, Other)
  Sender: FDA-Public Use
  Company Number: US-MPIJNJ-2013MPI000811

PATIENT
  Age: 71 Year
  Sex: Female

DRUGS (2)
  1. VELCADE [Suspect]
     Indication: PLASMA CELL MYELOMA
  2. DEXAMETHASONE [Suspect]
     Indication: PLASMA CELL MYELOMA

REACTIONS (3)
  - Multi-organ failure [Fatal]
  - Nocardia sepsis [Unknown]
  - Acute respiratory distress syndrome [Unknown]
